FAERS Safety Report 4636028-6 (Version None)
Quarter: 2005Q2

REPORT INFORMATION
  Report Type: 
  Country: None (occurrence: None)
  Receive Date: 20050331
  Receipt Date: 20040420
  Transmission Date: 20051028
  Serious: Yes (Life-Threatening, Other)
  Sender: FDA-Public Use
  Company Number: 200411929BCC

PATIENT
  Age: 54 Year
  Sex: Male
  Weight: 108.8633 kg

DRUGS (8)
  1. ALEVE [Suspect]
     Indication: HEADACHE
     Dosage: 220 MG, ONCE, ORAL
     Route: 048
     Dates: start: 20040417
  2. GLUCOVANCE [Concomitant]
  3. ACTOS [Concomitant]
  4. ZOLOFT [Concomitant]
  5. ATACAND HCT [Concomitant]
  6. ASPIRIN REGIMEN [Concomitant]
  7. PLAVIX [Concomitant]
  8. ZETIA [Concomitant]

REACTIONS (12)
  - ANAPHYLACTIC SHOCK [None]
  - ANXIETY [None]
  - FAECAL INCONTINENCE [None]
  - FATIGUE [None]
  - FLUSHING [None]
  - HYPERHIDROSIS [None]
  - HYPOTENSION [None]
  - LOSS OF CONSCIOUSNESS [None]
  - NAUSEA [None]
  - PETECHIAE [None]
  - STOMACH DISCOMFORT [None]
  - VASCULAR RUPTURE [None]
